FAERS Safety Report 7655081-9 (Version None)
Quarter: 2011Q3

REPORT INFORMATION
  Report Type: 
  Country: None (occurrence: None)
  Receive Date: 20110728
  Receipt Date: 20110715
  Transmission Date: 20111222
  Serious: Yes (Other)
  Sender: FDA-Public Use
  Company Number: 2011MA009222

PATIENT
  Age: 48 Year
  Sex: Male

DRUGS (3)
  1. COLCHICINE [Suspect]
     Indication: GOUT
     Dosage: 500 MCG;QD
  2. DICLOFENAC SODIUM [Suspect]
     Indication: ARTHRALGIA
     Dosage: 100 MG;QD
     Dates: end: 20100701
  3. ADENURIC (NO PREF. NAME) [Suspect]
     Indication: GOUT
     Dosage: 80 MG;QD;PO
     Route: 048
     Dates: start: 20100501, end: 20100701

REACTIONS (4)
  - LIVER FUNCTION TEST ABNORMAL [None]
  - PLATELET COUNT DECREASED [None]
  - ALANINE AMINOTRANSFERASE INCREASED [None]
  - GAMMA-GLUTAMYLTRANSFERASE INCREASED [None]
